FAERS Safety Report 6517647-9 (Version None)
Quarter: 2009Q4

REPORT INFORMATION
  Report Type: 
  Country: None (occurrence: None)
  Receive Date: 20091224
  Receipt Date: 20091217
  Transmission Date: 20100525
  Serious: Yes (Death)
  Sender: FDA-Public Use
  Company Number: JP-ROCHE-676300

PATIENT
  Age: 59 Year
  Sex: Male

DRUGS (1)
  1. TAMIFLU [Suspect]
     Indication: INFLUENZA
     Route: 048
     Dates: start: 20091214, end: 20091201

REACTIONS (2)
  - PNEUMONIA PNEUMOCOCCAL [None]
  - SEPTIC SHOCK [None]
